FAERS Safety Report 8934569 (Version 1)
Quarter: 2012Q4

REPORT INFORMATION
  Report Type: Report from Study
  Country: CA (occurrence: CA)
  Receive Date: 20121129
  Receipt Date: 20121129
  Transmission Date: 20130627
  Serious: Yes (Death, Other)
  Sender: FDA-Public Use
  Company Number: CA-ROCHE-1108827

PATIENT
  Age: 62 None
  Sex: Male

DRUGS (8)
  1. VEMURAFENIB [Suspect]
     Indication: METASTATIC MALIGNANT MELANOMA
     Route: 048
     Dates: start: 2012, end: 20120807
  2. MORPHINE [Concomitant]
  3. GABAPENTIN [Concomitant]
  4. HEPARIN [Concomitant]
     Route: 065
     Dates: end: 201206
  5. SENOKOT [Concomitant]
  6. PROPYLENE GLYCOL [Concomitant]
  7. ARTHROTEC [Concomitant]
  8. PROBIOTIC (ENZYMES, INC) [Concomitant]
     Route: 065
     Dates: start: 201206

REACTIONS (2)
  - Diarrhoea [Unknown]
  - Death [Fatal]
